FAERS Safety Report 16992731 (Version 1)
Quarter: 2019Q4

REPORT INFORMATION
  Report Type: Spontaneous
  Country: US (occurrence: US)
  Receive Date: 20190923
  Receipt Date: 20190923
  Transmission Date: 20200122
  Serious: Yes (Hospitalization)
  Sender: FDA-Public Use
  Company Number: None

PATIENT

DRUGS (2)
  1. TOPIRAMATE. [Suspect]
     Active Substance: TOPIRAMATE
     Indication: ANXIETY DISORDER
     Dosage: ?          QUANTITY:50 MG MILLIGRAM(S);OTHER FREQUENCY:3X;?
     Route: 048
     Dates: start: 20190218, end: 20190805
  2. BUPROPION HYDROCHLORIDE SR [Suspect]
     Active Substance: BUPROPION HYDROCHLORIDE
     Dosage: ?          QUANTITY:100 MG MILLIGRAM(S);?
     Route: 048
     Dates: start: 20190218, end: 20190805

REACTIONS (5)
  - Headache [None]
  - Agitation [None]
  - Nervousness [None]
  - Heat stroke [None]
  - Flushing [None]

NARRATIVE: CASE EVENT DATE: 20190717
